FAERS Safety Report 16989275 (Version 1)
Quarter: 2019Q4

REPORT INFORMATION
  Report Type: Report from Study
  Country: US (occurrence: US)
  Receive Date: 20191104
  Receipt Date: 20191104
  Transmission Date: 20200122
  Serious: Yes (Life-Threatening, Hospitalization, Other)
  Sender: FDA-Public Use
  Company Number: PHHO2015US012916

PATIENT
  Age: 62 Year
  Sex: Female
  Weight: 46.2 kg

DRUGS (9)
  1. MULTI VITAMIN [Concomitant]
     Active Substance: VITAMINS
     Indication: PRODUCT USED FOR UNKNOWN INDICATION
     Dosage: BY MOUTH EVERY DAY
     Route: 065
  2. LISINOPRIL HCTZ [Concomitant]
     Active Substance: HYDROCHLOROTHIAZIDE\LISINOPRIL
     Indication: PRODUCT USED FOR UNKNOWN INDICATION
     Dosage: QD
     Route: 065
  3. MORPHINE SULPHATE [Concomitant]
     Active Substance: MORPHINE SULFATE
     Indication: PAIN
     Dosage: 7.5 MG, Q3H PRN
     Route: 065
     Dates: start: 20150602
  4. CHLORDIAZEPOXIDE W/CLIDINIUM [Concomitant]
     Active Substance: CHLORDIAZEPOXIDE\CLIDINIUM
     Indication: PRODUCT USED FOR UNKNOWN INDICATION
     Dosage: UNK
     Route: 065
     Dates: start: 20150810
  5. ZORTRESS [Suspect]
     Active Substance: EVEROLIMUS
     Indication: ENDOMETRIAL CANCER
     Dosage: 10 MG, QD
     Route: 048
     Dates: start: 20150513, end: 20150810
  6. MS CONTIN [Concomitant]
     Active Substance: MORPHINE SULFATE
     Indication: PRODUCT USED FOR UNKNOWN INDICATION
     Dosage: 15 MG, Q12H
     Route: 065
     Dates: start: 20150602
  7. SENNA [Concomitant]
     Active Substance: SENNA LEAF\SENNOSIDES\SENNOSIDES A AND B
     Indication: PRODUCT USED FOR UNKNOWN INDICATION
     Route: 065
  8. FEMARA [Suspect]
     Active Substance: LETROZOLE
     Indication: ENDOMETRIAL CANCER
     Dosage: 2.5 MG, QD
     Route: 048
     Dates: start: 20150513, end: 20150810
  9. METFORMIN HCL TABLETS [Suspect]
     Active Substance: METFORMIN HYDROCHLORIDE
     Indication: ENDOMETRIAL CANCER
     Dosage: 500 MG, BID
     Route: 048
     Dates: start: 20150506, end: 20150804

REACTIONS (3)
  - Vomiting [Unknown]
  - Dehydration [Unknown]
  - Diarrhoea [Unknown]

NARRATIVE: CASE EVENT DATE: 20150715
